FAERS Safety Report 7016158-4 (Version None)
Quarter: 2010Q3

REPORT INFORMATION
  Report Type: 
  Country: None (occurrence: None)
  Receive Date: 20100927
  Receipt Date: 20100913
  Transmission Date: 20110219
  Serious: Yes (Other)
  Sender: FDA-Public Use
  Company Number: PT-MYLANLABS-2010S1016933

PATIENT
  Age: 79 Year
  Sex: Male

DRUGS (1)
  1. MYLAN-TERBINAFINE [Suspect]
     Indication: PRODUCT USED FOR UNKNOWN INDICATION
     Route: 048

REACTIONS (2)
  - DERMATITIS BULLOUS [None]
  - SKIN NECROSIS [None]
